FAERS Safety Report 9779092 (Version 2)
Quarter: 2014Q1

REPORT INFORMATION
  Report Type: Spontaneous
  Country: GB (occurrence: GB)
  Receive Date: 20131223
  Receipt Date: 20140110
  Transmission Date: 20141002
  Serious: Yes (Hospitalization, Congenital Anomaly, Other)
  Sender: FDA-Public Use
  Company Number: GB-ELI_LILLY_AND_COMPANY-GB201312004637

PATIENT
  Sex: 0

DRUGS (30)
  1. OLANZAPINE [Suspect]
     Indication: PRODUCT USED FOR UNKNOWN INDICATION
     Dosage: 5 MG, QD
     Route: 064
     Dates: start: 20120112, end: 20120114
  2. OLANZAPINE [Suspect]
     Indication: PRODUCT USED FOR UNKNOWN INDICATION
     Dosage: 5 MG, QD
     Route: 064
     Dates: start: 20120112, end: 20120114
  3. RISPERDAL [Suspect]
     Indication: SCHIZOPHRENIA, PARANOID TYPE
     Dosage: 3 MG, BID
     Route: 064
     Dates: start: 20120308, end: 20120609
  4. RISPERDAL [Suspect]
     Indication: SCHIZOPHRENIA, PARANOID TYPE
     Dosage: 3 MG, BID
     Route: 064
     Dates: start: 20120308, end: 20120609
  5. RISPERDAL [Suspect]
     Dosage: UNK
     Route: 064
     Dates: start: 20120221, end: 20120307
  6. RISPERDAL [Suspect]
     Dosage: UNK
     Route: 064
     Dates: start: 20120221, end: 20120307
  7. RISPERDAL [Suspect]
     Dosage: UNK
     Route: 064
     Dates: start: 20120609, end: 20120821
  8. RISPERDAL [Suspect]
     Dosage: UNK
     Route: 064
     Dates: start: 20120609, end: 20120821
  9. HALOPERIDOL [Suspect]
     Indication: SCHIZOPHRENIA
     Dosage: 5 MG, BID
     Route: 064
     Dates: start: 20111229, end: 20130104
  10. HALOPERIDOL [Suspect]
     Indication: SCHIZOPHRENIA
     Dosage: 5 MG, BID
     Route: 064
     Dates: start: 20111229, end: 20130104
  11. HALOPERIDOL [Suspect]
     Dosage: 5 MG, TID
     Route: 064
     Dates: start: 20120105, end: 20120109
  12. HALOPERIDOL [Suspect]
     Dosage: 5 MG, TID
     Route: 064
     Dates: start: 20120105, end: 20120109
  13. PROMETHAZINE [Suspect]
     Indication: PRODUCT USED FOR UNKNOWN INDICATION
     Dosage: 25 MG, PRN
     Route: 064
     Dates: start: 20111216
  14. PROMETHAZINE [Suspect]
     Indication: PRODUCT USED FOR UNKNOWN INDICATION
     Dosage: 25 MG, PRN
     Route: 064
     Dates: start: 20111216
  15. SENNA ALEXANDRINA LEAF [Suspect]
     Indication: PRODUCT USED FOR UNKNOWN INDICATION
     Dosage: 15 MG, UNKNOWN
     Route: 064
     Dates: start: 20120116
  16. SENNA ALEXANDRINA LEAF [Suspect]
     Indication: PRODUCT USED FOR UNKNOWN INDICATION
     Dosage: 15 MG, UNKNOWN
     Route: 064
     Dates: start: 20120116
  17. CYCLIZINE [Suspect]
     Indication: PRODUCT USED FOR UNKNOWN INDICATION
     Dosage: 50 MG, UNKNOWN
     Route: 064
     Dates: start: 20111228, end: 20120131
  18. CYCLIZINE [Suspect]
     Indication: PRODUCT USED FOR UNKNOWN INDICATION
     Dosage: 50 MG, UNKNOWN
     Route: 064
     Dates: start: 20111228, end: 20120131
  19. CHLORPROMAZINE [Suspect]
     Indication: SCHIZOPHRENIA, PARANOID TYPE
     Dosage: 25 MG, TID
     Route: 064
     Dates: start: 20111215, end: 20121219
  20. CHLORPROMAZINE [Suspect]
     Indication: SCHIZOPHRENIA, PARANOID TYPE
     Dosage: 25 MG, TID
     Route: 064
     Dates: start: 20111215, end: 20121219
  21. CHLORPROMAZINE [Suspect]
     Dosage: 200 MG, TID
     Route: 064
     Dates: start: 20120109, end: 20120114
  22. CHLORPROMAZINE [Suspect]
     Dosage: 200 MG, TID
     Route: 064
     Dates: start: 20120109, end: 20120114
  23. ZOPICLONE [Suspect]
     Indication: INSOMNIA
     Dosage: 15 MG, UNKNOWN
     Route: 064
     Dates: start: 20120210, end: 20120718
  24. ZOPICLONE [Suspect]
     Indication: INSOMNIA
     Dosage: 15 MG, UNKNOWN
     Route: 064
     Dates: start: 20120210, end: 20120718
  25. ALCOHOL [Suspect]
     Indication: PRODUCT USED FOR UNKNOWN INDICATION
     Dosage: UNK
     Route: 064
  26. ALCOHOL [Suspect]
     Indication: PRODUCT USED FOR UNKNOWN INDICATION
     Dosage: UNK
     Route: 064
  27. ENTONOX [Suspect]
     Indication: ANALGESIC THERAPY
     Dosage: UNK
     Route: 064
     Dates: start: 20120718, end: 20120718
  28. ENTONOX [Suspect]
     Indication: ANALGESIC THERAPY
     Dosage: UNK
     Route: 064
     Dates: start: 20120718, end: 20120718
  29. SYNTOMETRINE /00145001/ [Suspect]
     Indication: PRODUCT USED FOR UNKNOWN INDICATION
     Dosage: UNK
     Route: 064
     Dates: start: 20120718, end: 20120718
  30. SYNTOMETRINE /00145001/ [Suspect]
     Indication: PRODUCT USED FOR UNKNOWN INDICATION
     Dosage: UNK
     Route: 064
     Dates: start: 20120718, end: 20120718

REACTIONS (5)
  - Drug withdrawal syndrome neonatal [Unknown]
  - Dextrocardia [Unknown]
  - Foetal alcohol syndrome [Unknown]
  - Foetal exposure during pregnancy [Recovered/Resolved]
  - Visual impairment [Unknown]
